FAERS Safety Report 7353890-7 (Version None)
Quarter: 2011Q1

REPORT INFORMATION
  Report Type: 
  Country: None (occurrence: None)
  Receive Date: 20110315
  Receipt Date: 20101227
  Transmission Date: 20110831
  Serious: No
  Sender: FDA-Public Use
  Company Number: US-BAYER-2011-019290

PATIENT
  Sex: Female

DRUGS (2)
  1. ASPIRIN [Suspect]
     Indication: PRODUCT USED FOR UNKNOWN INDICATION
     Route: 048
  2. ANTIHYPERTENSIVES [Concomitant]
     Dosage: UNK
     Route: 048
     Dates: start: 20100101

REACTIONS (1)
  - SLEEP DISORDER [None]
